FAERS Safety Report 6672302-X (Version None)
Quarter: 2010Q2

REPORT INFORMATION
  Report Type: 
  Country: None (occurrence: None)
  Receive Date: 20100408
  Receipt Date: 20100330
  Transmission Date: 20101027
  Serious: Yes (Other)
  Sender: FDA-Public Use
  Company Number: JP-PFIZER INC-2010039737

PATIENT
  Age: 60 Year
  Sex: Female

DRUGS (4)
  1. AMPICILLIN SODIUM/SULBACTAM SODIUM [Suspect]
     Indication: STAPHYLOCOCCAL SEPSIS
     Dosage: UNK
  2. MEROPENEM [Concomitant]
     Indication: SEPTIC EMBOLUS
     Dosage: UNK
  3. VANCOMYCIN [Concomitant]
     Indication: SEPTIC EMBOLUS
     Dosage: UNK
  4. LINEZOLID [Concomitant]
     Indication: SEPTIC EMBOLUS

REACTIONS (1)
  - PANCREATITIS [None]
